FAERS Safety Report 23982942 (Version 2)
Quarter: 2025Q4

REPORT INFORMATION
  Report Type: Spontaneous
  Country: US (occurrence: US)
  Receive Date: 20240617
  Receipt Date: 20251221
  Transmission Date: 20260117
  Serious: Yes (Other)
  Sender: COOPERSURGICAL
  Company Number: US-COOPERSURGICAL, INC.-2024CPS001675

PATIENT
  Sex: Female
  Weight: 117.91 kg

DRUGS (2)
  1. PARAGARD T 380A [Suspect]
     Active Substance: COPPER
     Dosage: UNK
     Route: 015
     Dates: start: 20130529
  2. MIRENA [Suspect]
     Active Substance: LEVONORGESTREL
     Dosage: UNK
     Dates: start: 20160504

REACTIONS (16)
  - Device breakage [Not Recovered/Not Resolved]
  - Foreign body in reproductive tract [Not Recovered/Not Resolved]
  - Complication of device removal [Not Recovered/Not Resolved]
  - Embedded device [Not Recovered/Not Resolved]
  - Device defective [Recovered/Resolved]
  - Micturition urgency [Unknown]
  - Cervical friability [Unknown]
  - Coital bleeding [Unknown]
  - Anxiety [Unknown]
  - Emotional distress [Unknown]
  - Nausea [Unknown]
  - Device expulsion [Not Recovered/Not Resolved]
  - Back pain [Unknown]
  - Abdominal pain lower [Unknown]
  - Amenorrhoea [Unknown]
  - Pain [Unknown]

NARRATIVE: CASE EVENT DATE: 20140101
